FAERS Safety Report 9294674 (Version 1)
Quarter: 2013Q2

REPORT INFORMATION
  Report Type: Spontaneous
  Country: US (occurrence: None)
  Receive Date: 20130516
  Receipt Date: 20130516
  Transmission Date: 20140414
  Serious: Yes (Life-Threatening, Hospitalization)
  Sender: FDA-Public Use
  Company Number: None

PATIENT
  Age: 76 Year
  Sex: Female
  Weight: 50 kg

DRUGS (1)
  1. AZITHROMYCIN [Suspect]
     Dosage: INJECTION, EVERY 6 MONTHS
     Dates: start: 20130403, end: 20130407

REACTIONS (1)
  - Anaphylactic shock [None]
